FAERS Safety Report 8492594-4 (Version None)
Quarter: 2012Q3

REPORT INFORMATION
  Report Type: 
  Country: None (occurrence: None)
  Receive Date: 20120706
  Receipt Date: 20120625
  Transmission Date: 20120928
  Serious: Yes (Other)
  Sender: FDA-Public Use
  Company Number: GB-ELI_LILLY_AND_COMPANY-GB201206008247

PATIENT
  Sex: Male

DRUGS (3)
  1. STRATTERA [Suspect]
     Dosage: 25 MG
  2. STRATTERA [Suspect]
     Dosage: 25 MG
  3. STRATTERA [Suspect]
     Dosage: 35 MG

REACTIONS (1)
  - POLLAKIURIA [None]
